FAERS Safety Report 15632419 (Version 2)
Quarter: 2018Q4

REPORT INFORMATION
  Report Type: Report from Study
  Country: US (occurrence: US)
  Receive Date: 20181119
  Receipt Date: 20181126
  Transmission Date: 20190205
  Serious: Yes (Hospitalization, Other)
  Sender: FDA-Public Use
  Company Number: US-HORIZON-KRY-0370-2018

PATIENT
  Age: 47 Year
  Sex: Female

DRUGS (1)
  1. KRYSTEXXA [Suspect]
     Active Substance: PEGLOTICASE
     Indication: GOUT
     Dates: start: 20181026

REACTIONS (3)
  - Urinary tract infection [Recovered/Resolved]
  - Feeding disorder [Recovered/Resolved]
  - Gout [Recovered/Resolved]
